FAERS Safety Report 5023513-0 (Version None)
Quarter: 2006Q2

REPORT INFORMATION
  Report Type: 
  Country: None (occurrence: None)
  Receive Date: 20060612
  Receipt Date: 20060602
  Transmission Date: 20061013
  Serious: Yes (Other)
  Sender: FDA-Public Use
  Company Number: US-GLAXOSMITHKLINE-A0607770A

PATIENT
  Age: 33 Year
  Sex: Female

DRUGS (6)
  1. LAMICTAL [Suspect]
     Indication: BIPOLAR DISORDER
     Dosage: 100MG PER DAY
     Route: 048
  2. RELAFEN [Suspect]
     Indication: CARPAL TUNNEL SYNDROME
     Dosage: 750MG UNKNOWN
     Route: 048
  3. NEURONTIN [Concomitant]
  4. RITALIN [Concomitant]
  5. WELLBUTRIN [Concomitant]
  6. FLONASE [Concomitant]

REACTIONS (2)
  - HYPOGLYCAEMIA [None]
  - PARAESTHESIA [None]
